FAERS Safety Report 17883498 (Version 4)
Quarter: 2020Q3

REPORT INFORMATION
  Report Type: Spontaneous
  Country: US (occurrence: US)
  Receive Date: 20200611
  Receipt Date: 20200709
  Transmission Date: 20201103
  Serious: No
  Sender: FDA-Public Use
  Company Number: US-009507513-2006USA004126

PATIENT
  Sex: Female

DRUGS (1)
  1. NEXPLANON [Suspect]
     Active Substance: ETONOGESTREL
     Indication: CONTRACEPTION
     Dosage: INSERTED EVERY 3 YEARS
     Route: 059
     Dates: start: 20181210

REACTIONS (3)
  - Menorrhagia [Unknown]
  - Device breakage [Not Recovered/Not Resolved]
  - Polymenorrhoea [Unknown]

NARRATIVE: CASE EVENT DATE: 2020
